FAERS Safety Report 8418885-0 (Version None)
Quarter: 2012Q2

REPORT INFORMATION
  Report Type: 
  Country: None (occurrence: None)
  Receive Date: 20120530
  Receipt Date: 20120515
  Transmission Date: 20120825
  Serious: Yes (Hospitalization)
  Sender: FDA-Public Use
  Company Number: 2012MA006435

PATIENT
  Sex: Female

DRUGS (3)
  1. PALIPERIDONE [Suspect]
     Indication: PSYCHOTIC DISORDER
     Dosage: 150 MG;IM
     Route: 030
  2. ANTIPSYCHOTICS [Concomitant]
  3. CITALOPRAM HYDROBROMIDE [Suspect]
     Dosage: 40 MG

REACTIONS (4)
  - MUSCULOSKELETAL STIFFNESS [None]
  - AGITATION [None]
  - PSYCHOTIC DISORDER [None]
  - AKATHISIA [None]
